FAERS Safety Report 4289057-9 (Version None)
Quarter: 2004Q1

REPORT INFORMATION
  Report Type: 
  Country: None (occurrence: None)
  Receive Date: 20040209
  Receipt Date: 20030121
  Transmission Date: 20041129
  Serious: Yes (Hospitalization, Disabling, Other)
  Sender: FDA-Public Use
  Company Number: WAES 0301USA02073

PATIENT
  Age: 62 Year
  Sex: Female
  Weight: 62 kg

DRUGS (6)
  1. XANAX [Concomitant]
     Indication: DEPRESSION
     Dates: start: 20000325
  2. IBUPROFEN [Concomitant]
     Indication: ARTHRITIS
     Dates: start: 20010101
  3. HUMULIN N [Concomitant]
  4. VIOXX [Suspect]
     Indication: PAIN
     Route: 048
     Dates: start: 20010409, end: 20020221
  5. VIOXX [Suspect]
     Indication: ARTHRITIS
     Route: 048
     Dates: start: 20010409, end: 20020221
  6. DIOVAN [Concomitant]

REACTIONS (13)
  - ANGINA PECTORIS [None]
  - CORONARY ARTERY DISEASE [None]
  - DECREASED ACTIVITY [None]
  - DIABETES MELLITUS [None]
  - DRUG INEFFECTIVE [None]
  - DYSPNOEA [None]
  - FLUID RETENTION [None]
  - HYPERTENSION [None]
  - LUNG DISORDER [None]
  - MYOCARDIAL INFARCTION [None]
  - OEDEMA [None]
  - OSTEOARTHRITIS [None]
  - THYROID DISORDER [None]
